FAERS Safety Report 21931063 (Version 1)
Quarter: 2023Q1

REPORT INFORMATION
  Report Type: Spontaneous
  Country: US (occurrence: None)
  Receive Date: 20230130
  Receipt Date: 20230130
  Transmission Date: 20230418
  Serious: Yes (Other)
  Sender: FDA-Public Use
  Company Number: None

PATIENT
  Age: 61 Year
  Sex: Male
  Weight: 86.18 kg

DRUGS (8)
  1. PREGABALIN [Suspect]
     Active Substance: PREGABALIN
     Indication: Pain
     Dosage: OTHER QUANTITY : 20 CAPSULES 1@BEDT;?FREQUENCY : AT BEDTIME;?
     Route: 048
     Dates: start: 20221208, end: 20221212
  2. ATORVASTATIN [Concomitant]
     Active Substance: ATORVASTATIN
  3. ATENOLOL [Concomitant]
     Active Substance: ATENOLOL
  4. EZETIMIBE [Concomitant]
     Active Substance: EZETIMIBE
  5. LOSARTAN [Concomitant]
     Active Substance: LOSARTAN
  6. LANSOPRAZOLE [Concomitant]
     Active Substance: LANSOPRAZOLE
  7. NURTEC ODT [Concomitant]
     Active Substance: RIMEGEPANT SULFATE
  8. META-MUCIL [Concomitant]

REACTIONS (5)
  - Dizziness [None]
  - Lethargy [None]
  - Feeling abnormal [None]
  - Headache [None]
  - Syncope [None]

NARRATIVE: CASE EVENT DATE: 20221212
